FAERS Safety Report 8617312 (Version 2)
Quarter: 2014Q1

REPORT INFORMATION
  Report Type: Spontaneous
  Country: US (occurrence: None)
  Receive Date: 20120323
  Receipt Date: 20130305
  Transmission Date: 20141002
  Serious: Yes (Hospitalization, Other)
  Sender: FDA-Public Use
  Company Number: 163-21880-11122997

PATIENT
  Age: 91 Year
  Sex: Female

DRUGS (14)
  1. REVLIMID [Suspect]
     Indication: PLASMA CELL MYELOMA
     Dosage: 15 MG, QD, PO
     Route: 048
     Dates: start: 20110922, end: 20111006
  2. CALCIUM [Concomitant]
  3. ASPIRIN (ACETYLSALICYLIC ACID) [Concomitant]
  4. PEPCID [Concomitant]
  5. METOPROLOL TARTRATE [Concomitant]
  6. NIFEDIPINE [Concomitant]
  7. GEMFIBROZIL [Concomitant]
  8. SINGULAIR [Concomitant]
  9. FERROUS SULFATE [Concomitant]
  10. BECLOMETHASONE DIPROPIONATE [Concomitant]
  11. PROCARDIA [Concomitant]
  12. QVAR [Concomitant]
  13. METAMUCIL (METAMUCIL ^PROCTER + GAMBLE^ [Concomitant]
  14. MULTI-VITAMIN [Concomitant]

REACTIONS (3)
  - Thrombocytopenia [None]
  - Anaemia [None]
  - Occult blood positive [None]
